FAERS Safety Report 5819761-X (Version None)
Quarter: 2008Q3

REPORT INFORMATION
  Report Type: 
  Country: None (occurrence: None)
  Receive Date: 20080723
  Receipt Date: 20080711
  Transmission Date: 20090109
  Serious: Yes (Hospitalization)
  Sender: FDA-Public Use
  Company Number: PT-PFIZER INC-2008057999

PATIENT
  Sex: Female
  Weight: 65 kg

DRUGS (1)
  1. ZYVOXID TABLET [Suspect]
     Indication: ENTEROCOCCAL INFECTION
     Route: 048
     Dates: start: 20080606, end: 20080619

REACTIONS (1)
  - DERMATITIS [None]
